FAERS Safety Report 6635196-4 (Version None)
Quarter: 2010Q1

REPORT INFORMATION
  Report Type: 
  Country: None (occurrence: None)
  Receive Date: 20100315
  Receipt Date: 20100302
  Transmission Date: 20100710
  Serious: Yes (Hospitalization)
  Sender: FDA-Public Use
  Company Number: JP-ROCHE-689220

PATIENT
  Age: 79 Year
  Sex: Male

DRUGS (3)
  1. AVASTIN [Suspect]
     Indication: LARGE CELL CARCINOMA OF THE RESPIRATORY TRACT STAGE UNSPECIFIED
     Dosage: FORM REPORTED AS INJECTION
     Route: 041
     Dates: start: 20100224, end: 20100224
  2. CARBOPLATIN [Concomitant]
     Dosage: FORM REPORTED AS INJECTION.
     Route: 041
  3. ALIMTA [Concomitant]
     Dosage: FORM:VIALS
     Route: 041

REACTIONS (1)
  - BRONCHIAL FISTULA [None]
